FAERS Safety Report 25943506 (Version 2)
Quarter: 2025Q4

REPORT INFORMATION
  Report Type: Spontaneous
  Country: US (occurrence: US)
  Receive Date: 20251021
  Receipt Date: 20251028
  Transmission Date: 20260118
  Serious: No
  Sender: BIOVITRUM
  Company Number: US-BIOVITRUM-2025-US-011556

PATIENT
  Age: 76 Year
  Sex: Female

DRUGS (3)
  1. DOPTELET [Suspect]
     Active Substance: AVATROMBOPAG MALEATE
     Indication: Immune thrombocytopenia
     Dosage: TWICE WEEKLY
     Route: 048
     Dates: start: 20240604
  2. DOPTELET [Suspect]
     Active Substance: AVATROMBOPAG MALEATE
     Dosage: 20 MG TAB?1X1 DAILY
     Route: 048
  3. DOPTELET [Suspect]
     Active Substance: AVATROMBOPAG MALEATE
     Dosage: ONCE A DAY
     Route: 048

REACTIONS (4)
  - Product use issue [Not Recovered/Not Resolved]
  - Migraine [Unknown]
  - Treatment noncompliance [Unknown]
  - Headache [Unknown]

NARRATIVE: CASE EVENT DATE: 20240604
